FAERS Safety Report 21084593 (Version 1)
Quarter: 2022Q3

REPORT INFORMATION
  Report Type: Spontaneous
  Country: US (occurrence: US)
  Receive Date: 20220714
  Receipt Date: 20220714
  Transmission Date: 20221027
  Serious: No
  Sender: FDA-Public Use
  Company Number: US-JAZZ-202201USGW00329

PATIENT
  Age: 2 Year
  Sex: Male
  Weight: 12.4 kg

DRUGS (2)
  1. EPIDIOLEX [Suspect]
     Active Substance: CANNABIDIOL
     Indication: Product used for unknown indication
     Dosage: 70 MILLIGRAM, BID
     Route: 048
     Dates: end: 202202
  2. EPIDIOLEX [Suspect]
     Active Substance: CANNABIDIOL
     Dosage: 150 MILLIGRAM, BID
     Route: 048
     Dates: start: 20220207

REACTIONS (2)
  - Seizure [Unknown]
  - Emergency care [Unknown]

NARRATIVE: CASE EVENT DATE: 20220207
